FAERS Safety Report 6144673-4 (Version None)
Quarter: 2009Q2

REPORT INFORMATION
  Report Type: 
  Country: None (occurrence: None)
  Receive Date: 20090406
  Receipt Date: 20090331
  Transmission Date: 20091009
  Serious: Yes (Disabling)
  Sender: FDA-Public Use
  Company Number: B0557975A

PATIENT
  Age: 48 Year
  Sex: Male

DRUGS (10)
  1. COMBIVIR [Suspect]
     Indication: ACQUIRED IMMUNODEFICIENCY SYNDROME
     Route: 048
     Dates: start: 20061221, end: 20070305
  2. KALETRA [Suspect]
     Indication: ACQUIRED IMMUNODEFICIENCY SYNDROME
     Route: 048
     Dates: start: 20061221
  3. EPZICOM [Suspect]
     Indication: ACQUIRED IMMUNODEFICIENCY SYNDROME
     Route: 048
     Dates: start: 20070305
  4. ZITHROMAX [Concomitant]
     Indication: OPPORTUNISTIC INFECTION PROPHYLAXIS
     Route: 048
     Dates: start: 20061019, end: 20070603
  5. BAKTAR [Concomitant]
     Indication: ANTIFUNGAL PROPHYLAXIS
     Route: 048
     Dates: start: 20061019, end: 20080406
  6. SULFADOXINE PYRIMETHAMINE [Concomitant]
     Indication: CEREBRAL TOXOPLASMOSIS
     Dosage: 200MG PER DAY
     Route: 048
     Dates: start: 20061025, end: 20061025
  7. SULFADOXINE PYRIMETHAMINE [Concomitant]
     Dosage: 200MG PER DAY
     Route: 048
     Dates: start: 20061026, end: 20061220
  8. SULFADOXINE PYRIMETHAMINE [Concomitant]
     Dosage: 200MG PER DAY
     Route: 048
     Dates: start: 20061221, end: 20080406
  9. CLINDAMYCIN HCL [Concomitant]
     Indication: CEREBRAL TOXOPLASMOSIS
     Dosage: 2400MG PER DAY
     Route: 065
     Dates: start: 20061025, end: 20061220
  10. CLINDAMYCIN HCL [Concomitant]
     Indication: TOXOPLASMOSIS PROPHYLAXIS
     Dosage: 1200MG PER DAY
     Route: 065
     Dates: start: 20061220, end: 20080406

REACTIONS (4)
  - ANAEMIA [None]
  - ARTHRALGIA [None]
  - FEMORAL NECK FRACTURE [None]
  - HAEMOGLOBIN DECREASED [None]
